FAERS Safety Report 6875864-2 (Version None)
Quarter: 2010Q2

REPORT INFORMATION
  Report Type: 
  Country: None (occurrence: None)
  Receive Date: 20100616
  Receipt Date: 20100322
  Transmission Date: 20101027
  Serious: Yes (Hospitalization)
  Sender: FDA-Public Use
  Company Number: DSA_42834_2010

PATIENT
  Sex: Female

DRUGS (1)
  1. XENAZINE [Suspect]
     Indication: HUNTINGTON'S CHOREA
     Dosage: (25 MG BID ORAL)
     Route: 048
     Dates: start: 20090501, end: 20100219

REACTIONS (2)
  - DEPRESSION [None]
  - SUICIDE ATTEMPT [None]
